FAERS Safety Report 10025129 (Version 2)
Quarter: 2014Q1

REPORT INFORMATION
  Report Type: Spontaneous
  Country: US (occurrence: None)
  Receive Date: 20140314
  Receipt Date: 20140321
  Transmission Date: 20141002
  Serious: Yes (Hospitalization)
  Sender: FDA-Public Use
  Company Number: 2014-US-002666

PATIENT
  Age: 57 Year
  Sex: Female

DRUGS (19)
  1. XYREM [Suspect]
     Indication: NARCOLEPSY
     Route: 048
     Dates: start: 201212
  2. TOPAMAX (TOPIRAMATE) [Concomitant]
  3. ZOLOFT (SERTRALINE HYDROCHLORIDE) [Concomitant]
  4. PREMARIN (ESTROGENS CONJUGATED) [Concomitant]
  5. ELAVIL (AMITRIPTYLINE HYDROCHLORIDE) [Concomitant]
  6. IBUPROFEN [Concomitant]
  7. ZOCOR [Concomitant]
  8. VITAMIN D [Concomitant]
  9. MULTIVITAMIN [Concomitant]
  10. CLONIDINE [Concomitant]
  11. GABAPENTIN [Concomitant]
  12. METHOCARBAMOL [Concomitant]
  13. PLAVIX [Concomitant]
  14. MOBIC [Concomitant]
  15. PROVIGIL [Concomitant]
  16. PCONCERTA [Concomitant]
  17. AVONEX [Concomitant]
  18. BENICAR [Concomitant]
  19. LISINOPRIL [Concomitant]

REACTIONS (2)
  - Cerebrovascular accident [None]
  - Multiple sclerosis relapse [None]
